FAERS Safety Report 7287581-8 (Version None)
Quarter: 2011Q1

REPORT INFORMATION
  Report Type: 
  Country: None (occurrence: None)
  Receive Date: 20110211
  Receipt Date: 20110204
  Transmission Date: 20110831
  Serious: Yes (Hospitalization)
  Sender: FDA-Public Use
  Company Number: US-ASTELLAS-2010US005233

PATIENT

DRUGS (1)
  1. VESICARE [Suspect]
     Indication: PRODUCT USED FOR UNKNOWN INDICATION
     Dosage: 5 MG, UNKNOWN/D
     Route: 048
     Dates: start: 20101201, end: 20101201

REACTIONS (3)
  - DRUG INEFFECTIVE [None]
  - SPINAL DISORDER [None]
  - NOCTURIA [None]
